FAERS Safety Report 6947036-4 (Version None)
Quarter: 2010Q3

REPORT INFORMATION
  Report Type: 
  Country: None (occurrence: None)
  Receive Date: 20100827
  Receipt Date: 20090831
  Transmission Date: 20110219
  Serious: No
  Sender: FDA-Public Use
  Company Number: US-ABBOTT-09P-163-0594848-00

PATIENT
  Age: 59 Year
  Sex: Male

DRUGS (6)
  1. NIASPAN [Suspect]
     Indication: BLOOD CHOLESTEROL INCREASED
     Dates: start: 20080101, end: 20081101
  2. NIASPAN [Suspect]
     Dosage: CUT DOWN DUE TO COST
     Dates: start: 20081101, end: 20090401
  3. NIASPAN [Suspect]
     Dates: start: 20090401, end: 20090801
  4. NIASPAN [Suspect]
     Dates: start: 20090810
  5. SUPPLEMENTS [Concomitant]
     Indication: SUPPLEMENTATION THERAPY
     Dosage: UNKNOWN
     Route: 048
     Dates: end: 20090801
  6. FISH OIL [Concomitant]
     Indication: SUPPLEMENTATION THERAPY
     Dosage: UNKNOWN

REACTIONS (3)
  - BLOOD TRIGLYCERIDES INCREASED [None]
  - HIGH DENSITY LIPOPROTEIN DECREASED [None]
  - VITAMIN B6 INCREASED [None]
